FAERS Safety Report 10280198 (Version 4)
Quarter: 2015Q2

REPORT INFORMATION
  Report Type: Spontaneous
  Country: IT (occurrence: IT)
  Receive Date: 20140707
  Receipt Date: 20150626
  Transmission Date: 20150821
  Serious: Yes (Hospitalization)
  Sender: FDA-Public Use
  Company Number: IT-UCBSA-2014004232

PATIENT
  Age: 44 Year
  Sex: Female
  Weight: 72 kg

DRUGS (3)
  1. CIMZIA [Suspect]
     Active Substance: CERTOLIZUMAB PEGOL
     Indication: RHEUMATOID ARTHRITIS
     Dosage: 200 MG, EV 2 WEEKS(QOW)
     Route: 058
     Dates: start: 20130507, end: 20131219
  2. METHOTREXAT TEVA [Concomitant]
     Indication: RHEUMATOID ARTHRITIS
     Dosage: 15MG
     Dates: start: 20090101, end: 20140626
  3. FOLINA [Concomitant]
     Active Substance: FOLIC ACID
     Dosage: 5 MG
     Route: 048
     Dates: start: 20090101, end: 20140626

REACTIONS (1)
  - Renal ischaemia [Recovered/Resolved with Sequelae]

NARRATIVE: CASE EVENT DATE: 20131123
